FAERS Safety Report 6303670-6 (Version None)
Quarter: 2009Q3

REPORT INFORMATION
  Report Type: 
  Country: None (occurrence: None)
  Receive Date: 20090807
  Receipt Date: 20090807
  Transmission Date: 20100115
  Serious: Yes (Life-Threatening, Hospitalization, Other)
  Sender: FDA-Public Use
  Company Number: None

PATIENT
  Age: 51 Year
  Sex: Female
  Weight: 111.1313 kg

DRUGS (20)
  1. MIDAZOLAM HCL [Suspect]
     Indication: SEDATION
     Dosage: IV BOLUS
     Route: 040
     Dates: start: 20070701, end: 20090531
  2. NARDIL [Concomitant]
  3. DIPHENYRAMINE [Concomitant]
  4. SOLU-MEDROL [Concomitant]
  5. PROMETHAZINE [Concomitant]
  6. DILAUDID [Concomitant]
  7. DIAZEPAM [Concomitant]
  8. CLONAZEPAM [Concomitant]
  9. PRAZSOIN HCL [Concomitant]
  10. SEROQUEL [Concomitant]
  11. RYTHMOL SR [Concomitant]
  12. WARFARIN SODIUM [Concomitant]
  13. LOVENOX [Concomitant]
  14. SYNTHROID [Concomitant]
  15. SPIRONOLACTIN [Concomitant]
  16. HYDROCHLOROTHIAZIDE [Concomitant]
  17. MISVASTATIN [Concomitant]
  18. MIRAPEX [Concomitant]
  19. PROTNOIX [Concomitant]
  20. ASPIRIN [Concomitant]

REACTIONS (10)
  - AGITATION [None]
  - AMNESIA [None]
  - BELLIGERENCE [None]
  - CONFUSIONAL STATE [None]
  - DEMENTIA [None]
  - DEPRESSED LEVEL OF CONSCIOUSNESS [None]
  - DRUG INTERACTION [None]
  - HOSTILITY [None]
  - PSYCHOTIC DISORDER [None]
  - RESPIRATORY DEPRESSION [None]
